FAERS Safety Report 9788937 (Version 2)
Quarter: 2014Q1

REPORT INFORMATION
  Report Type: Report from Study
  Country: DE (occurrence: DE)
  Receive Date: 20131230
  Receipt Date: 20140123
  Transmission Date: 20141002
  Serious: Yes (Hospitalization)
  Sender: FDA-Public Use
  Company Number: DE-GLAXOSMITHKLINE-Z0021800A

PATIENT
  Age: 58 Year
  Sex: Female
  Weight: 44.3 kg

DRUGS (5)
  1. PLACEBO [Suspect]
     Indication: CHRONIC OBSTRUCTIVE PULMONARY DISEASE
     Route: 055
     Dates: start: 20131120, end: 20131202
  2. FLUTICASONE FUROATE + VILANTEROL TRIFENATATE [Suspect]
     Indication: CHRONIC OBSTRUCTIVE PULMONARY DISEASE
     Route: 055
     Dates: start: 20131025, end: 20131202
  3. CITALOPRAM [Concomitant]
     Indication: DEPRESSION
     Dosage: 20MG TWICE PER DAY
     Route: 048
     Dates: start: 2009
  4. MIRTAZAPIN [Concomitant]
     Indication: DEPRESSION
     Dosage: 15MG TWICE PER DAY
     Route: 048
     Dates: start: 201308
  5. HALOPERIDOL [Concomitant]
     Indication: PANIC ATTACK
     Dosage: 10DROP AS REQUIRED
     Route: 048
     Dates: start: 20131211, end: 20131211

REACTIONS (1)
  - Chronic obstructive pulmonary disease [Recovered/Resolved]
